FAERS Safety Report 4620430-2 (Version None)
Quarter: 2005Q1

REPORT INFORMATION
  Report Type: 
  Country: None (occurrence: None)
  Receive Date: 20050324
  Receipt Date: 20050310
  Transmission Date: 20050727
  Serious: Yes (Other)
  Sender: FDA-Public Use
  Company Number: HQWYE024710MAR05

PATIENT
  Age: 77 Year
  Sex: Male

DRUGS (13)
  1. AMIODARONE HCL [Suspect]
     Indication: VENTRICULAR ARRHYTHMIA
     Dosage: 100 MG 1X PER 1 DAY ORAL
     Route: 048
     Dates: end: 20050108
  2. LASIX [Concomitant]
  3. ALDACTONE [Concomitant]
  4. ALLOPURINOL [Concomitant]
  5. FAMOTIDINE [Concomitant]
  6. MARZULENE S (LEVOGLUTAMIDE/SODIUM GUALENATE) [Concomitant]
  7. METHYCOBAL (MECOBALAMIN) [Concomitant]
  8. CLARITHROMYCIN [Concomitant]
  9. CONSTAN (ALPRAZOLAM) [Concomitant]
  10. DIOVAN [Concomitant]
  11. MAGNESIUM OXIDE (MAGNESIUM OXIDE) [Concomitant]
  12. CLOSTRIDIUM BUTYRICUM (CLOSTRIDIUM BUTYRICUM) [Concomitant]
  13. ISOSORBIDE DINITRATE [Concomitant]

REACTIONS (2)
  - HYPOGLYCAEMIA [None]
  - INSULIN AUTOIMMUNE SYNDROME [None]
